FAERS Safety Report 14035445 (Version 1)
Quarter: 2017Q4

REPORT INFORMATION
  Report Type: Spontaneous
  Country: DE (occurrence: DE)
  Receive Date: 20171003
  Receipt Date: 20171003
  Transmission Date: 20180321
  Serious: Yes (Other)
  Sender: FDA-Public Use
  Company Number: PHHY2017DE099063

PATIENT
  Sex: Male

DRUGS (1)
  1. SANDOSTATIN [Suspect]
     Active Substance: OCTREOTIDE ACETATE
     Indication: BRONCHIAL CARCINOMA
     Dosage: UNK
     Route: 065
     Dates: end: 2017

REACTIONS (3)
  - Product use in unapproved indication [Unknown]
  - Urticaria [Recovering/Resolving]
  - Paraneoplastic rash [Unknown]

NARRATIVE: CASE EVENT DATE: 201603
